FAERS Safety Report 14289487 (Version 1)
Quarter: 2017Q4

REPORT INFORMATION
  Report Type: Spontaneous
  Country: US (occurrence: None)
  Receive Date: 20171214
  Receipt Date: 20171214
  Transmission Date: 20180321
  Serious: No
  Sender: FDA-Public Use
  Company Number: None

PATIENT
  Age: 40 Year
  Sex: Female

DRUGS (10)
  1. AMOX/K CLAV [Concomitant]
     Active Substance: AMOXICILLIN\CLAVULANATE POTASSIUM
  2. TRAMADOL. [Concomitant]
     Active Substance: TRAMADOL
  3. AMOXICILLIN. [Concomitant]
     Active Substance: AMOXICILLIN
  4. GABAPENTIN. [Concomitant]
     Active Substance: GABAPENTIN
  5. LIALDA [Concomitant]
     Active Substance: MESALAMINE
  6. UCERIS [Concomitant]
     Active Substance: BUDESONIDE
  7. BUPROPN HCL [Concomitant]
     Active Substance: BUPROPION HYDROCHLORIDE
  8. STELARA [Suspect]
     Active Substance: USTEKINUMAB
     Indication: CROHN^S DISEASE
     Dosage: 90MG EVERY 8 WEEKS SUBCUTANEOUS
     Route: 058
     Dates: start: 20170725
  9. CIPROFLOXACN [Concomitant]
     Active Substance: CIPROFLOXACIN
  10. MERCAPTOPUR [Concomitant]

REACTIONS (1)
  - Hospitalisation [None]
